FAERS Safety Report 12211494 (Version 1)
Quarter: 2016Q1

REPORT INFORMATION
  Report Type: Spontaneous
  Country: FR (occurrence: FR)
  Receive Date: 20160325
  Receipt Date: 20160325
  Transmission Date: 20160526
  Serious: Yes (Other)
  Sender: FDA-Public Use
  Company Number: FR-TEVA-645181ISR

PATIENT
  Age: 62 Year
  Sex: Male

DRUGS (6)
  1. DOXORUBICINE TEVA [Suspect]
     Active Substance: DOXORUBICIN
     Indication: LYMPHOMA
     Dosage: 100 MILLIGRAM DAILY; R-CHOP PROTOCOL-DAY 2
     Route: 042
     Dates: start: 20150523, end: 20150523
  2. ENDOXAN [Suspect]
     Active Substance: CYCLOPHOSPHAMIDE
     Indication: LYMPHOMA
     Dosage: 1500 MILLIGRAM DAILY; R-CHOP PROTOCOL- DAY2
     Route: 042
     Dates: start: 20150523, end: 20150523
  3. VINCRISTINE HOSPIRA [Suspect]
     Active Substance: VINCRISTINE
     Indication: LYMPHOMA
     Dosage: 1 MILLIGRAM DAILY;
     Route: 042
     Dates: start: 20150523, end: 20150523
  4. CORTANCYL [Suspect]
     Active Substance: PREDNISONE
     Indication: LYMPHOMA
     Dosage: 80 MILLIGRAM DAILY;
     Route: 048
     Dates: start: 20150522, end: 20150522
  5. MABTHERA [Suspect]
     Active Substance: RITUXIMAB
     Indication: LYMPHOMA
     Dosage: 750 MILLIGRAM DAILY; R-CHOP PROTOCOL- DAY1
     Route: 042
     Dates: start: 20150522, end: 20150522
  6. MABTHERA [Suspect]
     Active Substance: RITUXIMAB
     Dosage: 1400 MILLIGRAM DAILY; MAINTENANCE TREATMENT -PLANNED DURING 2 YEARS
     Route: 058
     Dates: start: 20151005, end: 20151005

REACTIONS (2)
  - Condition aggravated [Recovered/Resolved]
  - Atrial flutter [Recovered/Resolved]

NARRATIVE: CASE EVENT DATE: 201505
